FAERS Safety Report 12365398 (Version 2)
Quarter: 2016Q2

REPORT INFORMATION
  Report Type: Report from Study
  Country: AR (occurrence: AR)
  Receive Date: 20160512
  Receipt Date: 20160517
  Transmission Date: 20160815
  Serious: Yes (Death, Disabling, Other)
  Sender: FDA-Public Use
  Company Number: PHHY2016AR065702

PATIENT
  Sex: Female

DRUGS (1)
  1. AFINITOR [Suspect]
     Active Substance: EVEROLIMUS
     Indication: RENAL CANCER
     Dosage: UNK
     Route: 065
     Dates: start: 20151015

REACTIONS (8)
  - Malignant neoplasm progression [Fatal]
  - General physical health deterioration [Fatal]
  - Abasia [Unknown]
  - Diet refusal [Unknown]
  - Weight decreased [Unknown]
  - Radiation skin injury [Fatal]
  - Tremor [Unknown]
  - Malaise [Unknown]
